FAERS Safety Report 7285586-4 (Version None)
Quarter: 2011Q1

REPORT INFORMATION
  Report Type: 
  Country: None (occurrence: None)
  Receive Date: 20110210
  Receipt Date: 20110207
  Transmission Date: 20110831
  Serious: Yes (Hospitalization)
  Sender: FDA-Public Use
  Company Number: A0779052A

PATIENT
  Age: 50 Year
  Sex: Male
  Weight: 168.6 kg

DRUGS (13)
  1. TOPROL-XL [Concomitant]
  2. INSULIN [Concomitant]
  3. AVANDIA [Suspect]
     Indication: DIABETES MELLITUS
     Dosage: 8MG PER DAY
     Route: 048
     Dates: end: 20071001
  4. HYDROCODONE BITARTRATE + ACETAMINOPHEN [Concomitant]
  5. GLIPIZIDE [Concomitant]
  6. JANUVIA [Concomitant]
  7. CYCLOBENZAPRINE [Concomitant]
  8. TRICOR [Concomitant]
  9. TIZANIDINE [Concomitant]
  10. LIPITOR [Concomitant]
  11. CIPROFLOXACIN HYDROCHLORIDE [Concomitant]
  12. LISINOPRIL [Concomitant]
  13. CADUET [Concomitant]

REACTIONS (3)
  - CARDIAC FAILURE CONGESTIVE [None]
  - ARTERIOSCLEROSIS CORONARY ARTERY [None]
  - MYOCARDIAL INFARCTION [None]
